FAERS Safety Report 5555031-5 (Version None)
Quarter: 2007Q4

REPORT INFORMATION
  Report Type: 
  Country: None (occurrence: None)
  Receive Date: 20071213
  Receipt Date: 20070807
  Transmission Date: 20080405
  Serious: No
  Sender: FDA-Public Use
  Company Number: US-AMGEN-KDL226659

PATIENT
  Sex: Female
  Weight: 83.5 kg

DRUGS (8)
  1. ENBREL [Suspect]
     Indication: RHEUMATOID ARTHRITIS
     Route: 058
     Dates: start: 20070523, end: 20070611
  2. MINIPRESS [Concomitant]
  3. TENORMIN [Concomitant]
  4. CYTOTEC [Concomitant]
  5. CENTRUM [Concomitant]
  6. ORUVAIL [Concomitant]
     Dates: start: 20021101
  7. ZETIA [Concomitant]
  8. CALCIUM WITH VITAMIN D [Concomitant]

REACTIONS (5)
  - ERYTHEMA [None]
  - HYPOAESTHESIA [None]
  - MYALGIA [None]
  - PAIN [None]
  - PARAESTHESIA [None]
